APPROVED DRUG PRODUCT: DOXEPIN HYDROCHLORIDE
Active Ingredient: DOXEPIN HYDROCHLORIDE
Strength: EQ 25MG BASE
Dosage Form/Route: CAPSULE;ORAL
Application: A072986 | Product #001
Applicant: WATSON LABORATORIES INC
Approved: Mar 29, 1991 | RLD: No | RS: No | Type: DISCN